FAERS Safety Report 8239627-8 (Version None)
Quarter: 2012Q1

REPORT INFORMATION
  Report Type: 
  Country: None (occurrence: None)
  Receive Date: 20120327
  Receipt Date: 20120327
  Transmission Date: 20120608
  Serious: No
  Sender: FDA-Public Use
  Company Number: None

PATIENT
  Age: 69 Year
  Sex: Male

DRUGS (2)
  1. BACTRIM [Suspect]
     Dates: start: 20100108, end: 20100201
  2. SAW PALMETTO [Suspect]
     Dates: start: 20100115, end: 20100201

REACTIONS (16)
  - CHOLESTASIS [None]
  - INFLUENZA [None]
  - ALANINE AMINOTRANSFERASE INCREASED [None]
  - FATIGUE [None]
  - LYMPHOCYTIC INFILTRATION [None]
  - HYPERHIDROSIS [None]
  - LIVER INJURY [None]
  - PRURITUS [None]
  - BLOOD ALKALINE PHOSPHATASE INCREASED [None]
  - GAMMA-GLUTAMYLTRANSFERASE INCREASED [None]
  - PYREXIA [None]
  - OCULAR ICTERUS [None]
  - HEPATIC INFILTRATION EOSINOPHILIC [None]
  - JAUNDICE [None]
  - PAIN [None]
  - ASPARTATE AMINOTRANSFERASE INCREASED [None]
